FAERS Safety Report 10340245 (Version 2)
Quarter: 2014Q3

REPORT INFORMATION
  Report Type: Report from Study
  Country: BE (occurrence: BE)
  Receive Date: 20140724
  Receipt Date: 20140812
  Transmission Date: 20150326
  Serious: Yes (Hospitalization)
  Sender: FDA-Public Use
  Company Number: BE-BRISTOL-MYERS SQUIBB COMPANY-21232293

PATIENT
  Age: 82 Year
  Sex: Female
  Weight: 50 kg

DRUGS (12)
  1. IRINOTECAN HCL [Suspect]
     Active Substance: IRINOTECAN HYDROCHLORIDE
     Indication: COLORECTAL CANCER METASTATIC
     Dosage: RESTARTED ON 28JAN13
     Route: 042
     Dates: start: 20121203
  2. ELVORINE [Suspect]
     Active Substance: LEUCOVORIN CALCIUM
     Indication: COLORECTAL CANCER METASTATIC
     Dosage: RESTARTED ON 28-JAN-13?200MG/M2
     Route: 042
     Dates: start: 20121203
  3. URFADYN [Concomitant]
     Active Substance: NIFURTOINOL
     Indication: CYSTITIS
  4. FLUOROURACIL. [Suspect]
     Active Substance: FLUOROURACIL
     Indication: COLORECTAL CANCER METASTATIC
     Dosage: RETARTED ON 28JAN13
     Route: 042
     Dates: start: 20121203
  5. CIPROFLOXACIN. [Concomitant]
     Active Substance: CIPROFLOXACIN
     Indication: INFECTION
  6. ZOLPIDEM [Concomitant]
     Active Substance: ZOLPIDEM\ZOLPIDEM TARTRATE
     Indication: INSOMNIA
  7. LITICAN [Concomitant]
     Active Substance: ALIZAPRIDE HYDROCHLORIDE
     Indication: NAUSEA
  8. SOTALOL. [Concomitant]
     Active Substance: SOTALOL
     Indication: HYPERTENSION
  9. ERBITUX [Suspect]
     Active Substance: CETUXIMAB
     Indication: COLORECTAL CANCER METASTATIC
     Dosage: RECENT ADMINISTRATION ON: 07JAN13?RESTARTED ON 21JAN13
     Route: 042
     Dates: start: 20121203
  10. XALATAN [Concomitant]
     Active Substance: LATANOPROST
     Indication: DRY EYE
  11. PROPIVERINE HCL [Concomitant]
     Indication: INCONTINENCE
  12. UREA. [Concomitant]
     Active Substance: UREA
     Indication: SKIN REACTION

REACTIONS (1)
  - Gastrointestinal toxicity [Recovered/Resolved]

NARRATIVE: CASE EVENT DATE: 20130108
